FAERS Safety Report 10598765 (Version 2)
Quarter: 2014Q4

REPORT INFORMATION
  Report Type: Spontaneous
  Country: US (occurrence: US)
  Receive Date: 20141121
  Receipt Date: 20141121
  Transmission Date: 20150529
  Serious: No
  Sender: FDA-Public Use
  Company Number: US-PFIZER INC-2014139478

PATIENT
  Age: 87 Year
  Sex: Female

DRUGS (1)
  1. BOSULIF [Suspect]
     Active Substance: BOSUTINIB MONOHYDRATE
     Indication: CHRONIC MYELOID LEUKAEMIA
     Dosage: 400 MG, 1X/DAY (4 (100MG)  TABLETS ONCE DAILLY)
     Dates: start: 20130219

REACTIONS (2)
  - Drug dose omission [Unknown]
  - Diarrhoea [Unknown]
